FAERS Safety Report 7243742-5 (Version None)
Quarter: 2011Q1

REPORT INFORMATION
  Report Type: 
  Country: None (occurrence: None)
  Receive Date: 20110125
  Receipt Date: 20110119
  Transmission Date: 20110831
  Serious: No
  Sender: FDA-Public Use
  Company Number: US-PFIZER INC-2011013477

PATIENT
  Sex: Female

DRUGS (1)
  1. PREMARIN [Suspect]
     Dosage: UNK
     Route: 067

REACTIONS (4)
  - VULVOVAGINAL ERYTHEMA [None]
  - VULVOVAGINAL BURNING SENSATION [None]
  - VULVITIS [None]
  - VULVOVAGINAL PRURITUS [None]
